FAERS Safety Report 6745088-8 (Version None)
Quarter: 2010Q2

REPORT INFORMATION
  Report Type: 
  Country: None (occurrence: None)
  Receive Date: 20100527
  Receipt Date: 20100519
  Transmission Date: 20101027
  Serious: Yes (Other)
  Sender: FDA-Public Use
  Company Number: US-JNJCH-2010012569

PATIENT
  Age: 51 Year
  Sex: Female

DRUGS (2)
  1. CALCIUM CARBONATE (UNSPECIFIED) [Suspect]
     Indication: DRUG USE FOR UNKNOWN INDICATION
     Dosage: TEXT:7.2 G DAILY
     Route: 048
  2. LEVOTHYROXINE SODIUM [Concomitant]
     Indication: HYPOTHYROIDISM
     Dosage: TEXT:UNSPECIFIED
     Route: 065

REACTIONS (1)
  - MILK-ALKALI SYNDROME [None]
